FAERS Safety Report 17333438 (Version 5)
Quarter: 2020Q1

REPORT INFORMATION
  Report Type: Spontaneous
  Country: JP (occurrence: JP)
  Receive Date: 20200128
  Receipt Date: 20200313
  Transmission Date: 20200409
  Serious: Yes (Hospitalization)
  Sender: FDA-Public Use
  Company Number: JP-ROCHE-2534467

PATIENT
  Age: 8 Year
  Sex: Female

DRUGS (1)
  1. XOLAIR [Suspect]
     Active Substance: OMALIZUMAB
     Indication: ASTHMA
     Route: 058
     Dates: start: 20190731

REACTIONS (13)
  - Eye swelling [Recovered/Resolved]
  - Abdominal pain [Unknown]
  - Urticaria [Recovered/Resolved]
  - Performance status decreased [Unknown]
  - Pruritus [Unknown]
  - Blood pressure decreased [Recovered/Resolved]
  - Malaise [Recovered/Resolved]
  - Pallor [Recovered/Resolved]
  - Anaphylactoid reaction [Recovering/Resolving]
  - Eye pruritus [Recovered/Resolved]
  - Somnolence [Recovered/Resolved]
  - Eye colour change [Recovered/Resolved]
  - Wheezing [Recovering/Resolving]

NARRATIVE: CASE EVENT DATE: 20190731
